FAERS Safety Report 7628926-6 (Version None)
Quarter: 2011Q3

REPORT INFORMATION
  Report Type: 
  Country: None (occurrence: None)
  Receive Date: 20110722
  Receipt Date: 20110719
  Transmission Date: 20111222
  Serious: Yes (Disabling)
  Sender: FDA-Public Use
  Company Number: CH-CELGENEUS-151-C5013-11071383

PATIENT
  Sex: Male
  Weight: 80 kg

DRUGS (16)
  1. MELPHALAN HYDROCHLORIDE [Suspect]
     Indication: MULTIPLE MYELOMA
     Dosage: 16 MILLIGRAM
     Route: 065
     Dates: start: 20090915
  2. CLOBETASOL PROPIONATE [Concomitant]
     Indication: SKIN REACTION
     Route: 061
     Dates: start: 20100309
  3. HEXTRIL [Concomitant]
     Indication: PROPHYLAXIS
     Dates: start: 20091202
  4. MELPHALAN HYDROCHLORIDE [Suspect]
     Route: 065
     Dates: end: 20110115
  5. PREDNISONE [Suspect]
     Route: 065
     Dates: end: 20110115
  6. KEPPRA [Concomitant]
     Dosage: 1500 MILLIGRAM
     Route: 048
     Dates: start: 20080101
  7. MAGNESIUM DIASPORAL [Concomitant]
     Indication: CONSTIPATION
     Route: 048
     Dates: start: 20090914
  8. THALIDOMIDE [Suspect]
     Route: 048
     Dates: end: 20110130
  9. OTRIVIN [Concomitant]
     Indication: PROPHYLAXIS
     Route: 045
     Dates: start: 20091202
  10. PLAVIX [Concomitant]
     Indication: THROMBOSIS PROPHYLAXIS
     Dosage: 75 MILLIGRAM
     Route: 048
     Dates: start: 20060101
  11. CETALLERG [Concomitant]
     Route: 048
     Dates: start: 20100309
  12. THALIDOMIDE [Suspect]
     Indication: MULTIPLE MYELOMA
     Dosage: 100 MILLIGRAM
     Route: 048
     Dates: start: 20090916
  13. PREDNISONE [Suspect]
     Indication: MULTIPLE MYELOMA
     Dosage: 155 MILLIGRAM
     Route: 065
     Dates: start: 20090916
  14. TORSEMIDE [Concomitant]
     Indication: OEDEMA
     Route: 048
     Dates: start: 20100104
  15. NEURONTIN [Concomitant]
     Dosage: 900 MILLIGRAM
     Route: 048
     Dates: start: 20080101
  16. MOVIPREP [Concomitant]
     Indication: CONSTIPATION
     Route: 048
     Dates: start: 20091028

REACTIONS (2)
  - BASAL CELL CARCINOMA [None]
  - BOWEN'S DISEASE [None]
